FAERS Safety Report 8065689-7 (Version None)
Quarter: 2012Q1

REPORT INFORMATION
  Report Type: 
  Country: None (occurrence: None)
  Receive Date: 20120117
  Receipt Date: 20120110
  Transmission Date: 20120608
  Serious: Yes (Death)
  Sender: FDA-Public Use
  Company Number: 2012MA000519

PATIENT
  Sex: Male

DRUGS (1)
  1. RISPERIDONE [Suspect]
     Dosage: 1 MG;BID;PO
     Route: 048
     Dates: start: 20090101, end: 20120101

REACTIONS (1)
  - SUDDEN DEATH [None]
